FAERS Safety Report 8162793-X (Version None)
Quarter: 2012Q1

REPORT INFORMATION
  Report Type: 
  Country: None (occurrence: None)
  Receive Date: 20120224
  Receipt Date: 20120220
  Transmission Date: 20120608
  Serious: Yes (Hospitalization)
  Sender: FDA-Public Use
  Company Number: IT-PFIZER INC-2012042729

PATIENT
  Age: 66 Year
  Sex: Female

DRUGS (3)
  1. CORTISONE ACETATE [Concomitant]
     Dosage: UNK
     Dates: start: 20040514, end: 20110505
  2. LEVOTHYROXINE SODIUM [Concomitant]
     Dosage: UNK
     Dates: start: 20040514, end: 20110505
  3. GENOTROPIN [Suspect]
     Indication: HYPOPITUITARISM
     Dosage: 0.2 MG, 1X/DAY
     Route: 058
     Dates: start: 20040514, end: 20110505

REACTIONS (1)
  - ADENOCARCINOMA [None]
